FAERS Safety Report 7985920-3 (Version None)
Quarter: 2011Q4

REPORT INFORMATION
  Report Type: 
  Country: None (occurrence: None)
  Receive Date: 20111214
  Receipt Date: 20111130
  Transmission Date: 20120403
  Serious: Yes (Death, Hospitalization, Other)
  Sender: FDA-Public Use
  Company Number: 2011MA017036

PATIENT
  Age: 66 Year
  Sex: Male
  Weight: 246 kg

DRUGS (47)
  1. MACROBID [Concomitant]
  2. METOCLOPRAMIDE [Concomitant]
  3. PHENERGAN [Concomitant]
  4. SALICYLATE [Concomitant]
  5. FURSEMIDE [Concomitant]
  6. ULTRAM [Concomitant]
  7. CO Q10 [Concomitant]
  8. FLONASE HUMALOG [Concomitant]
  9. SIMVASTATIN [Concomitant]
  10. TRAZODONE HCL [Concomitant]
  11. ZOFRAN [Concomitant]
  12. LEVAQUIN [Concomitant]
  13. PEPCID [Concomitant]
  14. PHENAZOPYRIDINE HCL TAB [Concomitant]
  15. ALBUTEROL [Concomitant]
  16. CARAFATE [Concomitant]
  17. FISH OIL [Concomitant]
  18. LAMOTRIGINE [Concomitant]
  19. LASIX [Concomitant]
  20. MECLIZINE [Concomitant]
  21. SPIRIVA [Concomitant]
  22. UROXATRAL [Concomitant]
  23. VICODIN [Concomitant]
  24. ACIPHEX [Concomitant]
  25. BENTYL [Concomitant]
  26. CARVEDILOL [Concomitant]
  27. LISINOPRIL [Concomitant]
  28. METFORMIN HCL [Concomitant]
  29. MIRALAX [Concomitant]
  30. CIPROFLOXACIN [Concomitant]
  31. CITALOPRAM [Concomitant]
  32. FLAGYL [Concomitant]
  33. JANUVIA [Concomitant]
  34. MULTI-VITAMIN [Concomitant]
  35. PROTONIX [Concomitant]
  36. INSULIN [Concomitant]
  37. IRONOLACTONE [Concomitant]
  38. DIGOXIN [Suspect]
     Indication: ATRIAL FIBRILLATION
     Dosage: 0.25 MG;QD;PO
     Route: 048
     Dates: start: 20080109, end: 20081103
  39. ADVAIR DISKUS 100/50 [Concomitant]
  40. ASPIRIN [Concomitant]
  41. IMDUR [Concomitant]
  42. NATRECOR [Concomitant]
  43. NITROFURANTOIN [Concomitant]
  44. POTASSIUM [Concomitant]
  45. COUMADIN [Concomitant]
  46. FLUTICASONE FUROATE [Concomitant]
  47. MORPHINE [Concomitant]

REACTIONS (56)
  - CONSTIPATION [None]
  - BLADDER SPASM [None]
  - ORTHOPNOEA [None]
  - SLEEP APNOEA SYNDROME [None]
  - PULMONARY CONGESTION [None]
  - ENCEPHALOMALACIA [None]
  - CHRONIC OBSTRUCTIVE PULMONARY DISEASE [None]
  - OEDEMA [None]
  - PROSTATOMEGALY [None]
  - TYPE 1 DIABETES MELLITUS [None]
  - DIABETIC NEUROPATHY [None]
  - ATRIOVENTRICULAR BLOCK FIRST DEGREE [None]
  - BLADDER DIVERTICULUM [None]
  - MITRAL VALVE INCOMPETENCE [None]
  - VOMITING [None]
  - SUPRAPUBIC PAIN [None]
  - URINARY TRACT INFECTION [None]
  - BALANITIS [None]
  - FATIGUE [None]
  - DILATATION VENTRICULAR [None]
  - ABDOMINAL PAIN [None]
  - CARDIAC FAILURE CONGESTIVE [None]
  - CARDIOMYOPATHY [None]
  - DECREASED APPETITE [None]
  - CHEST PAIN [None]
  - BLOOD OSMOLARITY DECREASED [None]
  - GASTROOESOPHAGEAL REFLUX DISEASE [None]
  - TOXICITY TO VARIOUS AGENTS [None]
  - NAUSEA [None]
  - PELVIC PAIN [None]
  - DYSPNOEA [None]
  - DEVICE MALFUNCTION [None]
  - HYPOTENSION [None]
  - ESSENTIAL HYPERTENSION [None]
  - ILEUS [None]
  - TRICUSPID VALVE INCOMPETENCE [None]
  - ECONOMIC PROBLEM [None]
  - OBSTRUCTION [None]
  - COUGH [None]
  - URINARY RETENTION [None]
  - PENILE OEDEMA [None]
  - HYPONATRAEMIA [None]
  - DIASTOLIC DYSFUNCTION [None]
  - JOINT CONTRACTURE [None]
  - HYPERGLYCAEMIA [None]
  - ANAEMIA [None]
  - MUSCLE SPASMS [None]
  - DIABETIC GASTROPARESIS [None]
  - NEUROGENIC BLADDER [None]
  - ABDOMINAL DISTENSION [None]
  - MULTIPLE INJURIES [None]
  - DRUG LEVEL FLUCTUATING [None]
  - ASTHENIA [None]
  - PROSTATITIS [None]
  - HYPERLIPIDAEMIA [None]
  - PULMONARY HYPERTENSION [None]
